FAERS Safety Report 16426672 (Version 1)
Quarter: 2019Q2

REPORT INFORMATION
  Report Type: Spontaneous
  Country: US (occurrence: US)
  Receive Date: 20190613
  Receipt Date: 20190613
  Transmission Date: 20190711
  Serious: No
  Sender: FDA-Public Use
  Company Number: US-BAYER-2019-113924

PATIENT
  Age: 96 Year
  Sex: Female
  Weight: 61 kg

DRUGS (1)
  1. MIRALAX [Suspect]
     Active Substance: POLYETHYLENE GLYCOL 3350
     Dosage: 17 G, QD
     Route: 048
     Dates: start: 2017

REACTIONS (5)
  - Abdominal pain upper [Unknown]
  - Product taste abnormal [Unknown]
  - Product solubility abnormal [None]
  - Nausea [Unknown]
  - Drug ineffective [Unknown]
